FAERS Safety Report 6216295-8 (Version None)
Quarter: 2009Q2

REPORT INFORMATION
  Report Type: 
  Country: None (occurrence: None)
  Receive Date: 20090603
  Receipt Date: 20090603
  Transmission Date: 20091009
  Serious: Yes (Hospitalization)
  Sender: FDA-Public Use
  Company Number: None

PATIENT
  Age: 55 Year
  Sex: Male
  Weight: 55 kg

DRUGS (3)
  1. CARBOPLATIN [Suspect]
     Dosage: 886 MG
  2. ERBITUX [Suspect]
     Dosage: 445 MG
  3. TAXOL [Suspect]
     Dosage: 356 MG

REACTIONS (7)
  - BACTERIA BLOOD IDENTIFIED [None]
  - ELECTROLYTE IMBALANCE [None]
  - OESOPHAGITIS [None]
  - PANCYTOPENIA [None]
  - PYREXIA [None]
  - STAPHYLOCOCCAL INFECTION [None]
  - WEIGHT DECREASED [None]
